FAERS Safety Report 21128347 (Version 1)
Quarter: 2022Q3

REPORT INFORMATION
  Report Type: Spontaneous
  Country: CN (occurrence: CN)
  Receive Date: 20220725
  Receipt Date: 20220725
  Transmission Date: 20221026
  Serious: Yes (Other)
  Sender: FDA-Public Use
  Company Number: None

PATIENT
  Age: 52 Year
  Sex: Female
  Weight: 56 kg

DRUGS (2)
  1. MANNITOL [Suspect]
     Active Substance: MANNITOL
     Indication: Wound complication
     Dosage: 250 ML ONCE DAILY (RAPID INFUSION WITHIN 30 MINUTES)
     Route: 041
     Dates: start: 20220707, end: 20220707
  2. MANNITOL [Suspect]
     Active Substance: MANNITOL
     Indication: Symptomatic treatment

REACTIONS (2)
  - Erythema of eyelid [Recovering/Resolving]
  - Swelling of eyelid [Recovering/Resolving]

NARRATIVE: CASE EVENT DATE: 20220707
